FAERS Safety Report 14681568 (Version 1)
Quarter: 2018Q1

REPORT INFORMATION
  Report Type: Spontaneous
  Country: US (occurrence: US)
  Receive Date: 20180326
  Receipt Date: 20180326
  Transmission Date: 20180509
  Serious: No
  Sender: FDA-Public Use
  Company Number: US-KASTLE THERAPEUTICS, LLC-2017KAS000046

PATIENT
  Age: 55 Year
  Sex: Female
  Weight: 55.84 kg

DRUGS (5)
  1. KYNAMRO [Suspect]
     Active Substance: MIPOMERSEN SODIUM
     Indication: OFF LABEL USE
  2. LEXAPRO [Concomitant]
     Active Substance: ESCITALOPRAM OXALATE
     Indication: ANXIETY
     Route: 048
     Dates: start: 201707
  3. KYNAMRO [Suspect]
     Active Substance: MIPOMERSEN SODIUM
     Indication: TYPE IIA HYPERLIPIDAEMIA
     Route: 058
     Dates: start: 20171218
  4. KYNAMRO [Suspect]
     Active Substance: MIPOMERSEN SODIUM
     Indication: TYPE IIA HYPERLIPIDAEMIA
     Route: 058
     Dates: start: 20170820, end: 201712
  5. KYNAMRO [Suspect]
     Active Substance: MIPOMERSEN SODIUM
     Indication: BLOOD CHOLESTEROL INCREASED

REACTIONS (11)
  - Headache [Unknown]
  - Neck pain [Unknown]
  - Musculoskeletal pain [Unknown]
  - Injection site bruising [Recovered/Resolved]
  - Pain in extremity [Unknown]
  - Multiple use of single-use product [Recovered/Resolved]
  - Inappropriate schedule of drug administration [Unknown]
  - Injection site erythema [Not Recovered/Not Resolved]
  - Injection site pain [Recovered/Resolved]
  - Injection site discolouration [Unknown]
  - Injection site swelling [Not Recovered/Not Resolved]

NARRATIVE: CASE EVENT DATE: 20170820
